FAERS Safety Report 9688166 (Version 3)
Quarter: 2013Q4

REPORT INFORMATION
  Report Type: Report from Study
  Country: CA (occurrence: CA)
  Receive Date: 20131114
  Receipt Date: 20131126
  Transmission Date: 20140711
  Serious: Yes (Other)
  Sender: FDA-Public Use
  Company Number: CA-ALEXION PHARMACEUTICALS INC.-A201303110

PATIENT
  Age: 73 Year
  Sex: Male

DRUGS (7)
  1. SOLIRIS [Suspect]
     Indication: PAROXYSMAL NOCTURNAL HAEMOGLOBINURIA
     Dosage: 600 MG, QW
     Route: 042
     Dates: start: 20130327, end: 20130417
  2. SOLIRIS [Suspect]
     Dosage: 900 MG, Q2W
     Route: 042
     Dates: start: 20130424
  3. COUMADIN [Concomitant]
     Indication: BUDD-CHIARI SYNDROME
     Dosage: 4 MG, QD
     Route: 048
  4. GABAPENTIN [Concomitant]
     Indication: ARTHRITIS
     Dosage: 100 MG, BID
     Route: 048
  5. RANITIDINE [Concomitant]
     Indication: PRODUCT USED FOR UNKNOWN INDICATION
     Dosage: 150 MG, BID
     Route: 048
  6. GATIFLOXACIN [Concomitant]
     Indication: CATARACT OPERATION
     Dosage: 1 GTT, QID IN OS
     Route: 047
     Dates: start: 20130506
  7. PREDNISOLONE [Concomitant]
     Indication: CATARACT OPERATION
     Dosage: 1 GTT, QID
     Route: 047
     Dates: start: 20130506

REACTIONS (11)
  - Transfusion [Recovered/Resolved]
  - Blood product transfusion dependent [Not Recovered/Not Resolved]
  - Condition aggravated [Not Recovered/Not Resolved]
  - Influenza like illness [Unknown]
  - Fatigue [Not Recovered/Not Resolved]
  - Asthenia [Not Recovered/Not Resolved]
  - Cough [Not Recovered/Not Resolved]
  - Headache [Not Recovered/Not Resolved]
  - Abdominal pain [Not Recovered/Not Resolved]
  - Pain in extremity [Not Recovered/Not Resolved]
  - Arthralgia [Not Recovered/Not Resolved]
